FAERS Safety Report 5907556-8 (Version None)
Quarter: 2008Q4

REPORT INFORMATION
  Report Type: 
  Country: None (occurrence: None)
  Receive Date: 20081002
  Receipt Date: 20081002
  Transmission Date: 20090506
  Serious: Yes (Disabling)
  Sender: FDA-Public Use
  Company Number: None

PATIENT
  Age: 41 Year
  Sex: Female
  Weight: 61.2356 kg

DRUGS (1)
  1. ASACOL [Suspect]
     Indication: PROCTITIS HAEMORRHAGIC

REACTIONS (3)
  - DISEASE RECURRENCE [None]
  - DRUG INEFFECTIVE [None]
  - LACTOSE INTOLERANCE [None]
